FAERS Safety Report 15087625 (Version 5)
Quarter: 2018Q3

REPORT INFORMATION
  Report Type: Spontaneous
  Country: US (occurrence: US)
  Receive Date: 20180629
  Receipt Date: 20180912
  Transmission Date: 20181010
  Serious: No
  Sender: FDA-Public Use
  Company Number: US-BIOGEN-2018BI00594946

PATIENT
  Age: 38 Year
  Sex: Female

DRUGS (4)
  1. AVONEX [Suspect]
     Active Substance: INTERFERON BETA-1A
     Route: 030
     Dates: end: 201807
  2. AVONEX [Suspect]
     Active Substance: INTERFERON BETA-1A
     Route: 065
  3. AVONEX [Suspect]
     Active Substance: INTERFERON BETA-1A
     Route: 030
     Dates: end: 201807
  4. AVONEX [Suspect]
     Active Substance: INTERFERON BETA-1A
     Indication: MULTIPLE SCLEROSIS
     Route: 030
     Dates: start: 201806, end: 201807

REACTIONS (14)
  - Pyrexia [Recovered/Resolved]
  - Malaise [Recovered/Resolved]
  - Multiple sclerosis [Unknown]
  - General symptom [Not Recovered/Not Resolved]
  - Intentional product misuse [Unknown]
  - Influenza like illness [Recovered/Resolved]
  - Dysgraphia [Unknown]
  - Cognitive disorder [Not Recovered/Not Resolved]
  - Central nervous system lesion [Unknown]
  - Pain [Recovered/Resolved]
  - Fatigue [Unknown]
  - Off label use [Recovered/Resolved]
  - Hypoaesthesia [Unknown]
  - Asthenia [Not Recovered/Not Resolved]

NARRATIVE: CASE EVENT DATE: 2018
